FAERS Safety Report 5325370-1 (Version None)
Quarter: 2007Q2

REPORT INFORMATION
  Report Type: 
  Country: None (occurrence: None)
  Receive Date: 20070509
  Receipt Date: 20070423
  Transmission Date: 20071010
  Serious: Yes (Hospitalization)
  Sender: FDA-Public Use
  Company Number: 2007RR-06982

PATIENT
  Age: 14 Year
  Sex: Female
  Weight: 55 kg

DRUGS (2)
  1. CEPHALEXIN [Suspect]
     Indication: URINARY TRACT INFECTION
     Dosage: 250 MG, ORAL
     Route: 048
     Dates: start: 20070320, end: 20070322
  2. TRIMETHOPRIM [Concomitant]

REACTIONS (3)
  - DEHYDRATION [None]
  - HAEMOLYTIC ANAEMIA [None]
  - RENAL TUBULAR NECROSIS [None]
